FAERS Safety Report 23283809 (Version 1)
Quarter: 2023Q4

REPORT INFORMATION
  Report Type: Other
  Country: US (occurrence: None)
  Receive Date: 20231211
  Receipt Date: 20231211
  Transmission Date: 20240109
  Serious: Yes (Other)
  Sender: FDA-Public Use
  Company Number: US-ROCHE-3469646

PATIENT

DRUGS (6)
  1. RITUXIMAB [Suspect]
     Active Substance: RITUXIMAB
     Indication: Mantle cell lymphoma
     Dosage: WEEKLY X 4 DURING CYCLE
     Route: 065
  2. RITUXIMAB [Suspect]
     Active Substance: RITUXIMAB
     Dosage: THEN ONCE EVERY OTHER CYCLE THROUGHOUT INDUCTION AND MAINTENANCE
     Route: 065
  3. ACALABRUTINIB [Suspect]
     Active Substance: ACALABRUTINIB
     Indication: Mantle cell lymphoma
     Route: 065
  4. LENALIDOMIDE [Suspect]
     Active Substance: LENALIDOMIDE
     Indication: Mantle cell lymphoma
     Dosage: 15 MG DAILY ON DAYS 1-21 OF A 28-DAY CYCLE FOR 12 CYCLES DURING INDUCTION
     Route: 065
  5. LENALIDOMIDE [Suspect]
     Active Substance: LENALIDOMIDE
     Dosage: 20 MG IF TOLERATED
     Route: 065
  6. LENALIDOMIDE [Suspect]
     Active Substance: LENALIDOMIDE
     Route: 065

REACTIONS (16)
  - Neutropenia [Unknown]
  - Pulmonary embolism [Unknown]
  - Thrombocytopenia [Unknown]
  - Anaemia [Unknown]
  - Rash [Unknown]
  - Fatigue [Unknown]
  - Nausea [Unknown]
  - Vomiting [Unknown]
  - Hyponatraemia [Unknown]
  - Upper respiratory tract infection [Unknown]
  - Urinary tract infection [Unknown]
  - Cellulitis [Unknown]
  - Sinusitis [Unknown]
  - Herpes zoster [Unknown]
  - COVID-19 [Unknown]
  - COVID-19 pneumonia [Unknown]
